FAERS Safety Report 26083147 (Version 1)
Quarter: 2025Q4

REPORT INFORMATION
  Report Type: Spontaneous
  Country: CN (occurrence: CN)
  Receive Date: 20251124
  Receipt Date: 20251124
  Transmission Date: 20260117
  Serious: Yes (Other)
  Sender: PFIZER
  Company Number: CN-PFIZER INC-PV202500136376

PATIENT
  Age: 25 Year
  Sex: Female
  Weight: 62.5 kg

DRUGS (3)
  1. CARBOPROST TROMETHAMINE [Suspect]
     Active Substance: CARBOPROST TROMETHAMINE
     Indication: Uterine hypotonus
     Dosage: 250 UG, 1X/DAY
     Route: 030
     Dates: start: 20251106, end: 20251106
  2. CARBOPROST METHYL [Concomitant]
     Active Substance: CARBOPROST METHYL
     Indication: Uterine hypotonus
     Dosage: 1 MG, 1X/DAY
     Route: 067
     Dates: start: 20251106, end: 20251106
  3. ERGONOVINE MALEATE [Concomitant]
     Active Substance: ERGONOVINE MALEATE
     Indication: Uterine hypotonus
     Dosage: 0.2 MG, 1X/DAY
     Route: 030
     Dates: start: 20251106, end: 20251106

REACTIONS (4)
  - Vomiting [Recovering/Resolving]
  - Nausea [Recovering/Resolving]
  - Abdominal discomfort [Recovering/Resolving]
  - Off label use [Unknown]

NARRATIVE: CASE EVENT DATE: 20251106
